FAERS Safety Report 7833739-6 (Version None)
Quarter: 2011Q4

REPORT INFORMATION
  Report Type: 
  Country: None (occurrence: None)
  Receive Date: 20111024
  Receipt Date: 20111014
  Transmission Date: 20120403
  Serious: Yes (Death, Other)
  Sender: FDA-Public Use
  Company Number: IT-CELGENEUS-083-20785-11021445

PATIENT

DRUGS (7)
  1. WARFARIN SODIUM [Concomitant]
     Dosage: 1.25 MILLIGRAM
     Route: 065
  2. BORTEZOMIB [Suspect]
     Indication: MULTIPLE MYELOMA
     Route: 065
  3. ASPIRIN [Concomitant]
     Dosage: 100 MILLIGRAM
     Route: 065
  4. LMWH [Concomitant]
     Dosage: 40 MILLIGRAM
     Route: 065
  5. THALIDOMIDE [Suspect]
     Indication: MULTIPLE MYELOMA
     Route: 048
  6. PREDNISONE [Suspect]
     Indication: MULTIPLE MYELOMA
     Route: 065
  7. MELPHALAN HYDROCHLORIDE [Suspect]
     Indication: MULTIPLE MYELOMA
     Route: 065

REACTIONS (17)
  - PULMONARY EMBOLISM [None]
  - DEEP VEIN THROMBOSIS [None]
  - EPISTAXIS [None]
  - DEATH [None]
  - NEUTROPENIA [None]
  - SUDDEN DEATH [None]
  - CARDIAC ARREST [None]
  - SKIN HAEMORRHAGE [None]
  - GASTROINTESTINAL HAEMORRHAGE [None]
  - ACUTE MYOCARDIAL INFARCTION [None]
  - HAEMORRHAGE URINARY TRACT [None]
  - MULTIPLE MYELOMA [None]
  - THROMBOCYTOPENIA [None]
  - ARTERIAL THROMBOSIS [None]
  - NEURALGIA [None]
  - CEREBROVASCULAR ACCIDENT [None]
  - ANAEMIA [None]
